FAERS Safety Report 5811488-3 (Version None)
Quarter: 2008Q3

REPORT INFORMATION
  Report Type: 
  Country: None (occurrence: None)
  Receive Date: 20080714
  Receipt Date: 20080703
  Transmission Date: 20090109
  Serious: Yes (Death, Congenital Anomaly)
  Sender: FDA-Public Use
  Company Number: GXKR2007GB00547

PATIENT
  Sex: Female
  Weight: 3.6 kg

DRUGS (3)
  1. FLUOXETINE [Suspect]
     Dosage: MATERNAL DOSE: 20 MG, TRANSPLACENTAL
     Route: 064
     Dates: start: 20060914
  2. LUSTRAL (SERTRALINE HYDROCHLORIDE) UNKNOWN [Suspect]
     Dosage: 50 MG, QD, TRANSPLACENTAL ; 100 MG, TRANSPLACENTAL
     Route: 064
     Dates: end: 20060914
  3. LUSTRAL (SERTRALINE HYDROCHLORIDE) UNKNOWN [Suspect]
     Dosage: 50 MG, QD, TRANSPLACENTAL ; 100 MG, TRANSPLACENTAL
     Route: 064
     Dates: start: 20060323

REACTIONS (7)
  - APGAR SCORE LOW [None]
  - CAESAREAN SECTION [None]
  - CONGENITAL BRAIN DAMAGE [None]
  - ENCEPHALITIS [None]
  - MATERNAL DRUGS AFFECTING FOETUS [None]
  - NEONATAL ASPHYXIA [None]
  - NEONATAL DISORDER [None]
